FAERS Safety Report 7056497-4 (Version None)
Quarter: 2010Q4

REPORT INFORMATION
  Report Type: 
  Country: None (occurrence: None)
  Receive Date: 20101021
  Receipt Date: 20101016
  Transmission Date: 20110411
  Serious: Yes (Other)
  Sender: FDA-Public Use
  Company Number: US-PFIZER INC-2010131592

PATIENT
  Sex: Female
  Weight: 83.9 kg

DRUGS (1)
  1. CHANTIX [Suspect]
     Indication: SMOKING CESSATION THERAPY
     Dosage: 1 MG, 2X/DAY
     Route: 048
     Dates: start: 20100901, end: 20101008

REACTIONS (5)
  - DISORIENTATION [None]
  - DIZZINESS [None]
  - HYPERSENSITIVITY [None]
  - HYPOAESTHESIA FACIAL [None]
  - MALAISE [None]
